FAERS Safety Report 5040162-9 (Version None)
Quarter: 2006Q2

REPORT INFORMATION
  Report Type: 
  Country: None (occurrence: None)
  Receive Date: 20060630
  Receipt Date: 20060301
  Transmission Date: 20061013
  Serious: Yes (Hospitalization)
  Sender: FDA-Public Use
  Company Number: RU-MERCK-0603RUS00002

PATIENT
  Age: 8 Year
  Sex: Female

DRUGS (3)
  1. PRIMAXIN [Suspect]
     Indication: NECROTISING FASCIITIS
     Route: 065
  2. VANCOMYCIN [Concomitant]
     Indication: NECROTISING FASCIITIS
     Route: 042
     Dates: start: 20060101, end: 20060101
  3. AMOXICILLIN AND CLAVULANATE POTASSIUM [Concomitant]
     Indication: NECROTISING FASCIITIS
     Route: 042
     Dates: start: 20060101, end: 20060101

REACTIONS (1)
  - NECROTISING FASCIITIS [None]
